FAERS Safety Report 19416430 (Version 1)
Quarter: 2021Q2

REPORT INFORMATION
  Report Type: Spontaneous
  Country: GB (occurrence: GB)
  Receive Date: 20210615
  Receipt Date: 20210615
  Transmission Date: 20210717
  Serious: Yes (Other)
  Sender: FDA-Public Use
  Company Number: GB-AUROBINDO-AUR-APL-2021-004179

PATIENT
  Age: 46 Year
  Sex: Female
  Weight: 94.4 kg

DRUGS (18)
  1. SODIUM CHLORIDE. [Suspect]
     Active Substance: SODIUM CHLORIDE
     Dosage: UNK
     Route: 065
     Dates: start: 20201204
  2. CHLORPHENAMINE [Suspect]
     Active Substance: CHLORPHENIRAMINE MALEATE
     Indication: PREMEDICATION
     Dosage: 10 MG, UNK
     Route: 065
     Dates: start: 20201126
  3. TRUVADA [Suspect]
     Active Substance: EMTRICITABINE\TENOFOVIR DISOPROXIL FUMARATE
     Indication: PROPHYLAXIS AGAINST HIV INFECTION
     Dosage: UNK UNK, AS NECESSARY (PREP)
     Route: 065
  4. METOCLOPRAMIDE. [Suspect]
     Active Substance: METOCLOPRAMIDE
     Indication: NAUSEA
     Dosage: UNK
     Route: 065
  5. CITALOPRAM [Suspect]
     Active Substance: CITALOPRAM HYDROBROMIDE
     Indication: DEPRESSION
     Dosage: 30MG,QD
     Route: 065
     Dates: start: 2018
  6. DEXAMETHASONE. [Suspect]
     Active Substance: DEXAMETHASONE
     Indication: PREMEDICATION
     Dosage: 6.6 MG, UNK
     Route: 065
     Dates: start: 20201226
  7. PACLITAXEL. [Suspect]
     Active Substance: PACLITAXEL
     Dosage: UNK
     Route: 065
  8. TRASTUZUMAB. [Suspect]
     Active Substance: TRASTUZUMAB
     Indication: CHEMOTHERAPY
     Dosage: 579 MG, UNK
     Route: 065
     Dates: start: 20201203
  9. RANITIDINE. [Suspect]
     Active Substance: RANITIDINE
     Indication: PREMEDICATION
     Dosage: 150 MG
     Route: 065
     Dates: start: 20201126
  10. METOCLOPRAMIDE. [Suspect]
     Active Substance: METOCLOPRAMIDE
     Indication: VOMITING
     Dosage: 10MG,TID
     Route: 065
     Dates: start: 20201204
  11. PACLITAXEL. [Suspect]
     Active Substance: PACLITAXEL
     Dosage: 154 MG, UNK
     Route: 065
     Dates: start: 20201204
  12. SODIUM CHLORIDE. [Suspect]
     Active Substance: SODIUM CHLORIDE
     Dosage: UNK
     Route: 065
  13. SODIUM CHLORIDE. [Suspect]
     Active Substance: SODIUM CHLORIDE
     Dosage: UNK
     Route: 065
  14. CODEINE PHOSPHATE [Suspect]
     Active Substance: CODEINE PHOSPHATE
     Indication: FRACTURE
     Dosage: 15 MILLIGRAM
     Route: 048
     Dates: start: 20200420
  15. FILGRASTIM [Suspect]
     Active Substance: FILGRASTIM
     Indication: NEUTROPENIA
     Dosage: 480 UG, UNK
     Route: 065
     Dates: start: 20210102
  16. PACLITAXEL. [Suspect]
     Active Substance: PACLITAXEL
     Indication: BREAST CANCER
     Dosage: UNK
     Route: 065
  17. PERTUZUMAB. [Suspect]
     Active Substance: PERTUZUMAB
     Indication: CHEMOTHERAPY
     Dosage: 420 MG
     Route: 065
     Dates: start: 20201203
  18. SODIUM CHLORIDE. [Suspect]
     Active Substance: SODIUM CHLORIDE
     Indication: MEDICATION DILUTION
     Dosage: UNK
     Route: 065

REACTIONS (5)
  - Infusion related reaction [Recovered/Resolved]
  - Confusional state [Unknown]
  - Thinking abnormal [Not Recovered/Not Resolved]
  - Obsessive-compulsive disorder [Unknown]
  - Drug interaction [Unknown]

NARRATIVE: CASE EVENT DATE: 20201231
